FAERS Safety Report 9729847 (Version 3)
Quarter: 2014Q3

REPORT INFORMATION
  Report Type: Spontaneous
  Country: US (occurrence: US)
  Receive Date: 20131204
  Receipt Date: 20140801
  Transmission Date: 20150326
  Serious: Yes (Other)
  Sender: FDA-Public Use
  Company Number: US-009507513-1312USA001354

PATIENT
  Sex: Female
  Weight: 102.4 kg

DRUGS (1)
  1. NUVARING [Suspect]
     Active Substance: ETHINYL ESTRADIOL\ETONOGESTREL
     Indication: CONTRACEPTION
     Dosage: UNK
     Route: 067
     Dates: start: 201104, end: 20120221

REACTIONS (12)
  - Pulmonary embolism [Not Recovered/Not Resolved]
  - Hypoxia [Unknown]
  - Pulmonary hypertension [Unknown]
  - Initial insomnia [Unknown]
  - Cardiac murmur [Unknown]
  - Depression [Unknown]
  - Fatigue [Unknown]
  - Weight increased [Unknown]
  - Pulmonary embolism [Unknown]
  - Hypothyroidism [Unknown]
  - Sleep apnoea syndrome [Unknown]
  - Palpitations [Unknown]

NARRATIVE: CASE EVENT DATE: 201106
